FAERS Safety Report 5458121-0 (Version None)
Quarter: 2007Q3

REPORT INFORMATION
  Report Type: 
  Country: None (occurrence: None)
  Receive Date: 20070917
  Receipt Date: 20070905
  Transmission Date: 20080115
  Serious: Yes (Hospitalization)
  Sender: FDA-Public Use
  Company Number: 2007-02421

PATIENT
  Age: 42 Year
  Sex: Female
  Weight: 78 kg

DRUGS (11)
  1. VELCADE(BORTEZOMIB) INEJCTION [Suspect]
     Indication: MULTIPLE MYELOMA
     Dosage: 1.92 MG/M2, INTRAVENOUS
     Route: 042
     Dates: start: 20070102, end: 20070426
  2. LENALIDOMIDE [Concomitant]
  3. ACETAMINOPHEN [Concomitant]
  4. OSTAC (CLODRONATE DISODIUM) [Concomitant]
  5. FOLIC ACID [Concomitant]
  6. LYRICA [Concomitant]
  7. HYPROMELLOSE (HYPROMELLOSE) [Concomitant]
  8. DURATEARS (EDETATE DISODIUM, HYPROMELLOSE, POTASSIUM CHLORIDE, SODIUM [Concomitant]
  9. OXYGEN (OXYGEN) [Concomitant]
  10. LENALIDOMIDE [Concomitant]
  11. DEXAMETHASONE 0.5MG TAB [Concomitant]

REACTIONS (5)
  - ACUTE ABDOMEN [None]
  - COLITIS ISCHAEMIC [None]
  - DISEASE PROGRESSION [None]
  - GASTROINTESTINAL NECROSIS [None]
  - THROMBOSIS [None]
